FAERS Safety Report 5630631-2 (Version None)
Quarter: 2008Q1

REPORT INFORMATION
  Report Type: 
  Country: None (occurrence: None)
  Receive Date: 20080214
  Receipt Date: 20080207
  Transmission Date: 20080703
  Serious: Yes (Other)
  Sender: FDA-Public Use
  Company Number: 2008002973

PATIENT
  Sex: Female

DRUGS (1)
  1. ZYRTEC [Suspect]
     Dosage: 10 MG, ORAL
     Route: 048
     Dates: start: 20030101

REACTIONS (3)
  - DRUG INEFFECTIVE [None]
  - HANGOVER [None]
  - SOMNOLENCE [None]
